FAERS Safety Report 9280248 (Version 1)
Quarter: 2013Q2

REPORT INFORMATION
  Report Type: Spontaneous
  Country: US (occurrence: None)
  Receive Date: 20130507
  Receipt Date: 20130507
  Transmission Date: 20140414
  Serious: Yes (Hospitalization)
  Sender: FDA-Public Use
  Company Number: None

PATIENT
  Age: 86 Year
  Sex: Female

DRUGS (6)
  1. WARFARIN [Suspect]
     Route: 048
  2. AMIODARONE [Concomitant]
  3. AMLODIPINE [Concomitant]
  4. SINEMET [Concomitant]
  5. QUETIAPINE [Concomitant]
  6. SIMVASTATIN [Concomitant]

REACTIONS (1)
  - Abdominal wall haematoma [None]
